FAERS Safety Report 4690817-0 (Version None)
Quarter: 2005Q2

REPORT INFORMATION
  Report Type: 
  Country: None (occurrence: None)
  Receive Date: 20050608
  Receipt Date: 20050524
  Transmission Date: 20051028
  Serious: Yes (Hospitalization)
  Sender: FDA-Public Use
  Company Number: THYM-10556

PATIENT
  Age: 60 Year
  Sex: Male

DRUGS (9)
  1. THYMOGLOBULIN [Suspect]
     Indication: HEART TRANSPLANT
     Dosage: 1.5 MG/KG QD
     Dates: start: 20050420, end: 20050421
  2. SOLU-MEDROL [Concomitant]
  3. PREDNISONE TAB [Concomitant]
  4. IMURAN [Concomitant]
  5. NEORAL [Concomitant]
  6. DIPHENHYDRAMINE HCL [Concomitant]
  7. TYLENOL [Concomitant]
  8. STEROID [Concomitant]
  9. PREDNISONE TAB [Concomitant]

REACTIONS (22)
  - ACUTE RESPIRATORY DISTRESS SYNDROME [None]
  - ANOREXIA [None]
  - ARTHRALGIA [None]
  - ASTHENIA [None]
  - BLOOD ALBUMIN DECREASED [None]
  - BLOOD CREATININE INCREASED [None]
  - CARDIAC FAILURE CONGESTIVE [None]
  - CLOSTRIDIAL INFECTION [None]
  - COMPLICATIONS OF TRANSPLANT SURGERY [None]
  - DEHYDRATION [None]
  - DIARRHOEA [None]
  - DYSPNOEA [None]
  - FATIGUE [None]
  - HYPERKALAEMIA [None]
  - HYPONATRAEMIA [None]
  - LEUKOPENIA [None]
  - OEDEMA [None]
  - PNEUMONIA [None]
  - RENAL FAILURE ACUTE [None]
  - SERUM SICKNESS [None]
  - THERAPEUTIC RESPONSE DECREASED [None]
  - THROMBOCYTOPENIA [None]
